FAERS Safety Report 8177683-6 (Version None)
Quarter: 2012Q1

REPORT INFORMATION
  Report Type: 
  Country: None (occurrence: None)
  Receive Date: 20120301
  Receipt Date: 20120224
  Transmission Date: 20120608
  Serious: Yes (Life-Threatening, Hospitalization, Other)
  Sender: FDA-Public Use
  Company Number: PHHY2011DE113743

PATIENT
  Sex: Female
  Weight: 78 kg

DRUGS (7)
  1. RASILEZ [Suspect]
     Indication: HYPERTENSION
     Dosage: 150 MG, PER DAY
     Route: 048
     Dates: start: 20090101
  2. OPIOIDS [Concomitant]
     Indication: ANGINA PECTORIS
  3. DOSS [Concomitant]
     Indication: OSTEOPOROSIS
     Dosage: 1 DF, QD
     Route: 048
     Dates: start: 20040101
  4. BISOPROLOL FUMARATE [Concomitant]
     Indication: HYPERTENSION
     Dosage: 2.5 MG, UNK
     Route: 048
     Dates: start: 20100705, end: 20111229
  5. MARCUMAR [Concomitant]
     Dosage: 0.5 DF, UNK
     Route: 048
     Dates: start: 20100705
  6. BETA BLOCKING AGENTS [Concomitant]
     Dates: start: 20090101
  7. NEXIUM [Concomitant]
     Indication: GASTROOESOPHAGEAL REFLUX DISEASE
     Dosage: 20 MG, UNK
     Route: 048

REACTIONS (11)
  - MYOCARDIAL INFARCTION [None]
  - CHEST PAIN [None]
  - VOMITING [None]
  - VESTIBULAR NEURONITIS [None]
  - VERTIGO [None]
  - NAUSEA [None]
  - HYPERTENSION [None]
  - SYNCOPE [None]
  - CEREBELLAR INFARCTION [None]
  - ATRIAL FIBRILLATION [None]
  - ANGINA PECTORIS [None]
